FAERS Safety Report 10305022 (Version 2)
Quarter: 2014Q1

REPORT INFORMATION
  Report Type: Spontaneous
  Country: US (occurrence: None)
  Receive Date: 20120817
  Receipt Date: 20130815
  Transmission Date: 20141002
  Serious: Yes (Other)
  Sender: FDA-Public Use
  Company Number: ADR-2012-00225

PATIENT
  Sex: Female

DRUGS (2)
  1. LIORESAL INTRATHECAL(BACLOFEN INJECTION) 500 MCG/ML [Suspect]
     Dosage: 599.3 MCG/DAY
  2. LIORESAL INTRATHECAL(BACLOFEN INJECTION) 500 MCG/ML [Suspect]
     Indication: MUSCLE SPASTICITY
     Dosage: 599.3 MCG/DAY

REACTIONS (5)
  - Drug withdrawal syndrome [None]
  - Muscle rigidity [None]
  - Musculoskeletal stiffness [None]
  - Aphasia [None]
  - Muscle tightness [None]
